FAERS Safety Report 10084580 (Version 1)
Quarter: 2014Q2

REPORT INFORMATION
  Report Type: Spontaneous
  Country: US (occurrence: US)
  Receive Date: 20140417
  Receipt Date: 20140417
  Transmission Date: 20141212
  Serious: Yes (Other)
  Sender: FDA-Public Use
  Company Number: US-FRI-1000066405

PATIENT
  Age: 19 Year
  Sex: Male

DRUGS (9)
  1. LEXAPRO [Suspect]
     Indication: DEPRESSION
     Dosage: 20 MG
     Route: 048
     Dates: end: 20140312
  2. CYMBALTA [Concomitant]
     Dosage: 60 MG
     Route: 048
  3. LATUDA [Concomitant]
     Dosage: 40 MG
     Route: 048
  4. TOPIRAMATE [Concomitant]
     Dosage: 50 MG
     Route: 048
  5. QUETIAPINE [Concomitant]
     Dosage: 50 MG
     Route: 048
  6. BENZTROPINE [Concomitant]
     Dosage: 1 MG
     Route: 048
  7. VITAMIN D3 [Concomitant]
  8. SKELAXIN [Concomitant]
     Dosage: 100 MG
     Route: 048
  9. ASTEPRO [Concomitant]

REACTIONS (3)
  - Hepatic neoplasm [Not Recovered/Not Resolved]
  - Hepatic steatosis [Not Recovered/Not Resolved]
  - Hepatic enzyme increased [Not Recovered/Not Resolved]
